FAERS Safety Report 5570365-6 (Version None)
Quarter: 2007Q4

REPORT INFORMATION
  Report Type: 
  Country: None (occurrence: None)
  Receive Date: 20071219
  Receipt Date: 20071219
  Transmission Date: 20080405
  Serious: No
  Sender: FDA-Public Use
  Company Number: None

PATIENT
  Sex: Female
  Weight: 102.8 kg

DRUGS (1)
  1. INFLIXIMAB 100 MG CENTOCOR PHARMACEUTICALS [Suspect]
     Indication: VOGT-KOYANAGI-HARADA SYNDROME
     Dosage: 600 MG MONTHLY IV
     Route: 042
     Dates: start: 20060322, end: 20071212

REACTIONS (5)
  - HYPOAESTHESIA [None]
  - INFUSION RELATED REACTION [None]
  - NEUROPATHY [None]
  - PARAESTHESIA [None]
  - SKIN TIGHTNESS [None]
